FAERS Safety Report 9358790 (Version 2)
Quarter: 2013Q4

REPORT INFORMATION
  Report Type: Spontaneous
  Country: US (occurrence: US)
  Receive Date: 20130620
  Receipt Date: 20131212
  Transmission Date: 20140711
  Serious: Yes (Hospitalization)
  Sender: FDA-Public Use
  Company Number: US-B.I. PHARMACEUTICALS,INC./RIDGEFIELD-2013-BI-17207BP

PATIENT
  Age: 77 Year
  Sex: Male
  Weight: 83.46 kg

DRUGS (13)
  1. PRADAXA [Suspect]
     Indication: ANTICOAGULANT THERAPY
     Dosage: 300 MG
     Route: 048
     Dates: start: 20110316, end: 20120625
  2. PRADAXA [Suspect]
     Indication: ATRIAL FIBRILLATION
  3. COREG [Concomitant]
     Indication: ATRIAL FIBRILLATION
     Dosage: 50 MG
     Route: 048
  4. COREG [Concomitant]
     Indication: CARDIAC FAILURE CONGESTIVE
  5. COREG [Concomitant]
     Indication: ISCHAEMIC CARDIOMYOPATHY
  6. LASIX [Concomitant]
     Dosage: 40 MG
     Route: 048
  7. SIMVASTATIN [Concomitant]
     Dosage: 40 MG
     Route: 048
  8. CILOSTAZOL [Concomitant]
     Indication: PERIPHERAL VASCULAR DISORDER
     Dosage: 200 MG
     Route: 048
     Dates: end: 201206
  9. CARDIZEM [Concomitant]
     Indication: ATRIAL FIBRILLATION
     Dosage: 240 MG
     Route: 048
  10. TRAMADOL [Concomitant]
     Indication: ARTHRITIS
     Dosage: 300 MG
     Route: 048
  11. TRAMADOL [Concomitant]
     Indication: ARTHRALGIA
  12. VITAMIN D [Concomitant]
     Dosage: 3000 U
     Route: 048
  13. DIGOXIN [Concomitant]
     Indication: ATRIAL FIBRILLATION
     Dosage: 0.25 MG
     Route: 048
     Dates: end: 201206

REACTIONS (2)
  - Lower gastrointestinal haemorrhage [Unknown]
  - Anaemia [Unknown]
